FAERS Safety Report 4687732-5 (Version None)
Quarter: 2005Q2

REPORT INFORMATION
  Report Type: 
  Country: None (occurrence: None)
  Receive Date: 20050610
  Receipt Date: 20050506
  Transmission Date: 20051028
  Serious: Yes (Hospitalization)
  Sender: FDA-Public Use
  Company Number: US-MERCK-0505USA01328

PATIENT
  Age: 56 Year
  Sex: Female
  Weight: 67 kg

DRUGS (13)
  1. FOSAMAX [Suspect]
     Indication: OSTEOPOROSIS
     Route: 048
     Dates: start: 20010101
  2. PERI-COLACE [Concomitant]
     Route: 065
  3. KLONOPIN [Concomitant]
     Route: 065
  4. K-PHOS NEUTRAL [Concomitant]
     Route: 065
  5. MILK OF MAGNESIA TAB [Concomitant]
     Route: 065
  6. CALCIUM (UNSPECIFIED) [Concomitant]
     Route: 048
  7. MAGNESIUM (UNSPECIFIED) [Concomitant]
     Route: 065
  8. BEXTRA [Concomitant]
     Route: 065
     Dates: end: 20050201
  9. SYNTHROID [Concomitant]
     Route: 065
  10. FLEXERIL [Concomitant]
     Route: 065
  11. PROZAC [Concomitant]
     Route: 065
  12. CYTOMEL [Concomitant]
     Route: 065
  13. MUCINEX [Concomitant]
     Indication: PAIN
     Route: 065
     Dates: end: 20050201

REACTIONS (9)
  - BLOOD PHOSPHORUS DECREASED [None]
  - BLOOD PHOSPHORUS INCREASED [None]
  - C-REACTIVE PROTEIN INCREASED [None]
  - FEMORAL NECK FRACTURE [None]
  - HAEMATOCRIT DECREASED [None]
  - HAEMOGLOBIN DECREASED [None]
  - PAIN IN EXTREMITY [None]
  - RED BLOOD CELL SEDIMENTATION RATE INCREASED [None]
  - STRESS FRACTURE [None]
